FAERS Safety Report 6939984-6 (Version None)
Quarter: 2010Q3

REPORT INFORMATION
  Report Type: 
  Country: None (occurrence: None)
  Receive Date: 20100825
  Receipt Date: 20100824
  Transmission Date: 20110219
  Serious: Yes (Other)
  Sender: FDA-Public Use
  Company Number: US-JNJFOC-20100503682

PATIENT
  Age: 4 Year
  Sex: Male
  Weight: 17.24 kg

DRUGS (6)
  1. CHILDREN'S MOTRIN [Suspect]
     Indication: ABDOMINAL PAIN UPPER
     Route: 048
  2. CHILDREN'S MOTRIN [Suspect]
     Indication: OROPHARYNGEAL PAIN
     Route: 048
  3. CHILDREN'S TYLENOL [Suspect]
     Indication: URTICARIA
  4. CHILDREN'S TYLENOL [Suspect]
     Indication: OROPHARYNGEAL PAIN
  5. CHILDREN'S TYLENOL [Suspect]
     Indication: ABDOMINAL PAIN UPPER
  6. BENADRYL [Suspect]
     Indication: RASH
     Route: 048

REACTIONS (3)
  - CONDITION AGGRAVATED [None]
  - HYPERSENSITIVITY [None]
  - PRODUCT QUALITY ISSUE [None]
